FAERS Safety Report 5255686-9 (Version None)
Quarter: 2007Q1

REPORT INFORMATION
  Report Type: 
  Country: None (occurrence: None)
  Receive Date: 20070305
  Receipt Date: 20070223
  Transmission Date: 20070707
  Serious: Yes (Hospitalization)
  Sender: FDA-Public Use
  Company Number: US-PFIZER INC-2007008365

PATIENT
  Sex: Female
  Weight: 71.7 kg

DRUGS (11)
  1. SUTENT [Suspect]
     Indication: BREAST CANCER
     Route: 048
     Dates: start: 20061204, end: 20070129
  2. LASIX [Concomitant]
  3. DURAGESIC [Concomitant]
  4. PROZAC [Concomitant]
     Route: 048
     Dates: start: 20060109
  5. AVAPRO [Concomitant]
     Route: 048
     Dates: start: 20060109
  6. TOPROL-XL [Concomitant]
     Route: 048
  7. DIGOXIN [Concomitant]
     Route: 048
  8. ASPIRIN [Concomitant]
     Route: 048
  9. ACTONEL [Concomitant]
     Route: 048
  10. MAXZIDE [Concomitant]
     Dosage: TEXT:37.5/25 MG
     Route: 048
  11. COREG [Concomitant]

REACTIONS (3)
  - CHEST PAIN [None]
  - DYSPNOEA [None]
  - NAUSEA [None]
